FAERS Safety Report 13122894 (Version 1)
Quarter: 2017Q1

REPORT INFORMATION
  Report Type: Spontaneous
  Country: US (occurrence: US)
  Receive Date: 20170117
  Receipt Date: 20170117
  Transmission Date: 20170428
  Serious: Yes (Other)
  Sender: FDA-Public Use
  Company Number: US-PFIZER INC-2017018090

PATIENT
  Age: 59 Year
  Sex: Male
  Weight: 73.3 kg

DRUGS (1)
  1. TORISEL [Suspect]
     Active Substance: TEMSIROLIMUS
     Indication: RENAL CANCER
     Dosage: 25 MG, CYCLIC (EVERY 28 DAYS)
     Route: 042
     Dates: start: 201607, end: 201612

REACTIONS (3)
  - Neoplasm progression [Unknown]
  - Ascites [Unknown]
  - Malaise [Unknown]
